FAERS Safety Report 23734184 (Version 2)
Quarter: 2024Q2

REPORT INFORMATION
  Report Type: Report from Study
  Country: GB (occurrence: GB)
  Receive Date: 20240412
  Receipt Date: 20240425
  Transmission Date: 20240716
  Serious: Yes (Disabling, Other)
  Sender: FDA-Public Use
  Company Number: GB-SANDOZ-SDZ2024GB037811

PATIENT
  Sex: Female

DRUGS (3)
  1. HYRIMOZ [Suspect]
     Active Substance: ADALIMUMAB-ADAZ
     Dosage: 160 MG, (WEEK 0)
     Route: 058
     Dates: start: 20240408
  2. HYRIMOZ [Suspect]
     Active Substance: ADALIMUMAB-ADAZ
     Dosage: 80 MG, (WEEK 2)
     Route: 058
     Dates: start: 20240408
  3. HYRIMOZ [Suspect]
     Active Substance: ADALIMUMAB-ADAZ
     Indication: Hidradenitis
     Dosage: 40 MG, QW
     Route: 058
     Dates: start: 20240408

REACTIONS (2)
  - Mental disability [Not Recovered/Not Resolved]
  - Thirst [Unknown]
